FAERS Safety Report 6052896-8 (Version None)
Quarter: 2009Q1

REPORT INFORMATION
  Report Type: 
  Country: None (occurrence: None)
  Receive Date: 20090127
  Receipt Date: 20080721
  Transmission Date: 20090719
  Serious: No
  Sender: FDA-Public Use
  Company Number: US-ABBOTT-08P-163-0464107-00

PATIENT
  Sex: Male
  Weight: 93.07 kg

DRUGS (3)
  1. LUPRON DEPOT [Suspect]
     Indication: PROSTATE CANCER
     Dosage: UNKNOWN DOSE INJECTION X 2
     Route: 030
     Dates: start: 20060101, end: 20060101
  2. LUPRON DEPOT [Suspect]
     Indication: PROSTATIC SPECIFIC ANTIGEN INCREASED
     Dates: start: 20080618
  3. LUPRON DEPOT [Suspect]
     Indication: HORMONE REPLACEMENT THERAPY

REACTIONS (5)
  - ASTHENIA [None]
  - HEADACHE [None]
  - HOT FLUSH [None]
  - LIBIDO DECREASED [None]
  - PAIN [None]
